FAERS Safety Report 9746391 (Version 1)
Quarter: 2013Q4

REPORT INFORMATION
  Report Type: Spontaneous
  Country: US (occurrence: US)
  Receive Date: 20131211
  Receipt Date: 20131211
  Transmission Date: 20140711
  Serious: Yes (Other)
  Sender: FDA-Public Use
  Company Number: US-GLAXOSMITHKLINE-A1053046A

PATIENT
  Age: 45 Year
  Sex: Female

DRUGS (1)
  1. ADVAIR [Suspect]
     Indication: ASTHMA
     Route: 055
     Dates: start: 20121003

REACTIONS (4)
  - Choking [Unknown]
  - Insomnia [Unknown]
  - Middle insomnia [Unknown]
  - Drug administration error [Unknown]
